FAERS Safety Report 4451829-5 (Version None)
Quarter: 2004Q3

REPORT INFORMATION
  Report Type: 
  Country: None (occurrence: None)
  Receive Date: 20040915
  Receipt Date: 20040915
  Transmission Date: 20050211
  Serious: Yes (Hospitalization)
  Sender: FDA-Public Use
  Company Number: None

PATIENT
  Age: 72 Year
  Sex: Male
  Weight: 116 kg

DRUGS (12)
  1. IBUPROFEN [Suspect]
     Indication: BACK PAIN
  2. ACETAMINOPHEN [Concomitant]
  3. CALCIUM / VITAMIN D [Concomitant]
  4. DOCUSATE NA [Concomitant]
  5. RANITIDINE HCL [Concomitant]
  6. INJ CLINIC GOSERELIN [Concomitant]
  7. CYCLOBENZAPRINE HCL [Concomitant]
  8. FELODIPINE [Concomitant]
  9. FOSINOPRIL NA [Concomitant]
  10. ... [Concomitant]
  11. POTASSIUM CHLORIDE [Concomitant]
  12. MEGESTROL ACETATE [Concomitant]

REACTIONS (2)
  - FAECES DISCOLOURED [None]
  - VOMITING [None]
